FAERS Safety Report 23981911 (Version 2)
Quarter: 2024Q2

REPORT INFORMATION
  Report Type: Spontaneous
  Country: DE (occurrence: DE)
  Receive Date: 20240617
  Receipt Date: 20240617
  Transmission Date: 20240715
  Serious: Yes (Hospitalization)
  Sender: FDA-Public Use
  Company Number: DE-BoehringerIngelheim-2024-BI-023629

PATIENT
  Age: 40 Year
  Sex: Female
  Weight: 81.2 kg

DRUGS (7)
  1. JARDIANCE [Suspect]
     Active Substance: EMPAGLIFLOZIN
     Indication: Type 2 diabetes mellitus
     Route: 048
  2. OZEMPIC [Concomitant]
     Active Substance: SEMAGLUTIDE
     Indication: Type 2 diabetes mellitus
  3. TRESIBA [Concomitant]
     Active Substance: INSULIN DEGLUDEC
     Indication: Type 2 diabetes mellitus
  4. TRESIBA [Concomitant]
     Active Substance: INSULIN DEGLUDEC
     Dates: end: 20240408
  5. METFORMIN [Concomitant]
     Active Substance: METFORMIN HYDROCHLORIDE
     Indication: Type 2 diabetes mellitus
  6. FIASP [Concomitant]
     Active Substance: INSULIN ASPART
     Indication: Type 2 diabetes mellitus
     Dosage: ACCORDING TO INSULIN PLAN?BLOOD GLUCOSE 100-150 MG/DL: 6-6-8 IU?BLOOD GLUCOSE 151-200 MG/DL: 8-8-8 I
     Dates: start: 20240410, end: 20240419
  7. SIMVASTATIN [Concomitant]
     Active Substance: SIMVASTATIN
     Indication: Low density lipoprotein increased

REACTIONS (10)
  - Euglycaemic diabetic ketoacidosis [Recovered/Resolved]
  - Pneumonia [Recovered/Resolved]
  - Vomiting [Unknown]
  - Skin ulcer [Unknown]
  - Hyperkeratosis [Unknown]
  - Diabetic nephropathy [Unknown]
  - Decreased appetite [Unknown]
  - Nausea [Unknown]
  - Weight decreased [Unknown]
  - Glycosylated haemoglobin increased [Unknown]

NARRATIVE: CASE EVENT DATE: 20240401
